FAERS Safety Report 21780602 (Version 1)
Quarter: 2022Q4

REPORT INFORMATION
  Report Type: Spontaneous
  Country: AT (occurrence: AT)
  Receive Date: 20221227
  Receipt Date: 20221227
  Transmission Date: 20230113
  Serious: Yes (Death, Hospitalization)
  Sender: FDA-Public Use
  Company Number: None

PATIENT
  Age: 75 Year
  Sex: Male
  Weight: 80 kg

DRUGS (3)
  1. IMBRUVICA [Suspect]
     Active Substance: IBRUTINIB
     Indication: Chronic lymphocytic leukaemia
     Dosage: 1-0-0
     Route: 048
     Dates: start: 202206
  2. ALLOPURINOL [Concomitant]
     Active Substance: ALLOPURINOL
     Indication: Product used for unknown indication
     Dates: start: 20220712
  3. SELEXID [Concomitant]
     Indication: Product used for unknown indication
     Dates: start: 20220801

REACTIONS (3)
  - Coagulopathy [Fatal]
  - Off label use [Unknown]
  - Acute hepatic failure [Fatal]
